FAERS Safety Report 5084736-8 (Version None)
Quarter: 2006Q3

REPORT INFORMATION
  Report Type: 
  Country: None (occurrence: None)
  Receive Date: 20060815
  Receipt Date: 20060802
  Transmission Date: 20061208
  Serious: Yes (Hospitalization)
  Sender: FDA-Public Use
  Company Number: L06-TUR-03075-01

PATIENT
  Age: 31 Year
  Sex: Male

DRUGS (3)
  1. ESCITALOPRAM [Suspect]
     Indication: BIPOLAR I DISORDER
     Dosage: 10 MG
  2. LITHIUM [Suspect]
     Indication: BIPOLAR I DISORDER
     Dosage: 1200 MG
  3. LAMOTRIGINE [Concomitant]

REACTIONS (31)
  - ABASIA [None]
  - ALANINE AMINOTRANSFERASE INCREASED [None]
  - ANXIETY [None]
  - ASPARTATE AMINOTRANSFERASE DECREASED [None]
  - BLOOD CHLORIDE DECREASED [None]
  - BLOOD CREATINE PHOSPHOKINASE INCREASED [None]
  - BLOOD CREATINE PHOSPHOKINASE MB INCREASED [None]
  - BLOOD LACTATE DEHYDROGENASE INCREASED [None]
  - C-REACTIVE PROTEIN INCREASED [None]
  - CEREBELLAR SYNDROME [None]
  - COORDINATION ABNORMAL [None]
  - DYSARTHRIA [None]
  - DYSKINESIA [None]
  - DYSSTASIA [None]
  - ELECTROENCEPHALOGRAM ABNORMAL [None]
  - ELECTROLYTE IMBALANCE [None]
  - EPSTEIN-BARR VIRUS ANTIGEN POSITIVE [None]
  - GAIT DISTURBANCE [None]
  - HEART RATE INCREASED [None]
  - HYPONATRAEMIA [None]
  - LYMPHOCYTE PERCENTAGE DECREASED [None]
  - NAUSEA [None]
  - NEUTROPHIL PERCENTAGE INCREASED [None]
  - NYSTAGMUS [None]
  - PNEUMONIA [None]
  - PYREXIA [None]
  - RED BLOOD CELL SEDIMENTATION RATE INCREASED [None]
  - THERAPEUTIC AGENT TOXICITY [None]
  - TREMOR [None]
  - VIRUS SEROLOGY TEST POSITIVE [None]
  - VOMITING [None]
